FAERS Safety Report 16952405 (Version 2)
Quarter: 2019Q4

REPORT INFORMATION
  Report Type: Spontaneous
  Country: US (occurrence: US)
  Receive Date: 20191023
  Receipt Date: 20191108
  Transmission Date: 20200122
  Serious: Yes (Other)
  Sender: FDA-Public Use
  Company Number: US-AKORN PHARMACEUTICALS-2019AKN02208

PATIENT
  Age: 18 Year
  Sex: Female
  Weight: 62.59 kg

DRUGS (3)
  1. MYORISAN [Suspect]
     Active Substance: ISOTRETINOIN
     Dosage: UNK
     Dates: start: 20190708, end: 2019
  2. MYORISAN [Suspect]
     Active Substance: ISOTRETINOIN
     Dosage: 60 MG, 1X/DAY
     Dates: start: 20180531, end: 20181029
  3. MYORISAN [Suspect]
     Active Substance: ISOTRETINOIN
     Indication: ACNE
     Dosage: 30 MG, 1X/DAY
     Dates: start: 20180430, end: 20180530

REACTIONS (3)
  - Off label use [Recovered/Resolved]
  - Orthostatic hypotension [Unknown]
  - Mood altered [Recovered/Resolved]

NARRATIVE: CASE EVENT DATE: 2018
